FAERS Safety Report 16972201 (Version 4)
Quarter: 2019Q4

REPORT INFORMATION
  Report Type: Spontaneous
  Country: ES (occurrence: ES)
  Receive Date: 20191029
  Receipt Date: 20191115
  Transmission Date: 20200122
  Serious: Yes (Hospitalization, Other)
  Sender: FDA-Public Use
  Company Number: ES-009507513-1910ESP013395

PATIENT
  Age: 6 Year
  Sex: Male

DRUGS (18)
  1. SINGULAIR [Suspect]
     Active Substance: MONTELUKAST SODIUM
     Indication: CHILDHOOD ASTHMA
     Dosage: UNK
     Route: 048
  2. MENINGOCOCCAL POLYSACCHARIDE VACCINE C NOS [Suspect]
     Active Substance: MENINGOCOCCAL POLYSACCHARIDE VACCINE C\NEISSERIA MENINGITIDIS GROUP C CAPSULAR POLYSACCHARIDE ANTIGEN
     Indication: PROPHYLAXIS
     Dosage: UNK
     Dates: start: 20100308, end: 20100308
  3. SYNFLORIX [Suspect]
     Active Substance: PNEUMOCOCCAL VACCINE POLYVALENT
     Dosage: UNK
     Dates: start: 20110110, end: 20110110
  4. DIPHTHERIA AND TETANUS TOXOIDS AND PERTUSSIS VACCINE AND HAEMOPHILUS B POLYSACCHARIDE VACCINE AND POLIOVIRUS VACCINE NOS [Suspect]
     Active Substance: DIPHTHERIA AND TETANUS TOXOIDS AND ACELLULAR PERTUSSIS ADSORBED, INACTIVATED POLIOVIRUS AND HAEMOPHILUS B CONJUGATE (TETANUS TOXOID CONJUGATE) VACCINE
     Dosage: UNK
     Dates: start: 20110707
  5. MENINGOCOCCAL POLYSACCHARIDE VACCINE C NOS [Suspect]
     Active Substance: MENINGOCOCCAL POLYSACCHARIDE VACCINE C\NEISSERIA MENINGITIDIS GROUP C CAPSULAR POLYSACCHARIDE ANTIGEN
     Dosage: UNK
     Dates: start: 20100507, end: 20100507
  6. HEPATITIS B VIRUS VACCINE (UNSPECIFIED) [Suspect]
     Active Substance: HEPATITIS B VIRUS VACCINE
     Indication: PROPHYLAXIS
     Dosage: UNK
     Dates: start: 20100209, end: 20100209
  7. BOOSTRIX [Suspect]
     Active Substance: TETANUS TOXOID, REDUCED DIPHTHERIA TOXOID AND ACELLULAR PERTUSSIS VACCINE, ADSORBED ANTIGENS
     Indication: PROPHYLAXIS
     Dosage: UNK
     Dates: start: 20160218
  8. DIPHTHERIA AND TETANUS TOXOIDS AND PERTUSSIS VACCINE AND HAEMOPHILUS B POLYSACCHARIDE VACCINE AND POLIOVIRUS VACCINE NOS [Suspect]
     Active Substance: DIPHTHERIA AND TETANUS TOXOIDS AND ACELLULAR PERTUSSIS ADSORBED, INACTIVATED POLIOVIRUS AND HAEMOPHILUS B CONJUGATE (TETANUS TOXOID CONJUGATE) VACCINE
     Dosage: UNK
     Dates: start: 20100507
  9. DIPHTHERIA AND TETANUS TOXOIDS AND PERTUSSIS VACCINE AND HAEMOPHILUS B POLYSACCHARIDE VACCINE AND POLIOVIRUS VACCINE NOS [Suspect]
     Active Substance: DIPHTHERIA AND TETANUS TOXOIDS AND ACELLULAR PERTUSSIS ADSORBED, INACTIVATED POLIOVIRUS AND HAEMOPHILUS B CONJUGATE (TETANUS TOXOID CONJUGATE) VACCINE
     Dosage: UNK
     Dates: start: 20100709
  10. M-M-R II [Suspect]
     Active Substance: MEASLES VIRUS STRAIN ENDERS^ ATTENUATED EDMONSTON LIVE ANTIGEN\MUMPS VIRUS STRAIN B LEVEL JERYL LYNN LIVE ANTIGEN\RUBELLA VIRUS STRAIN WISTAR RA 27/3 LIVE ANTIGEN
     Indication: PROPHYLAXIS
     Dates: start: 20110407
  11. SYNFLORIX [Suspect]
     Active Substance: PNEUMOCOCCAL VACCINE POLYVALENT
     Dosage: UNK
     Dates: start: 20100709, end: 20100709
  12. SYNFLORIX [Suspect]
     Active Substance: PNEUMOCOCCAL VACCINE POLYVALENT
     Dosage: UNK
     Dates: start: 20100507, end: 20100507
  13. VARIVAX [Suspect]
     Active Substance: VARICELLA-ZOSTER VIRUS STRAIN OKA/MERCK LIVE ANTIGEN
     Indication: PROPHYLAXIS
     Dates: start: 20110407
  14. DIPHTHERIA AND TETANUS TOXOIDS AND PERTUSSIS VACCINE AND HAEMOPHILUS B POLYSACCHARIDE VACCINE AND POLIOVIRUS VACCINE NOS [Suspect]
     Active Substance: DIPHTHERIA AND TETANUS TOXOIDS AND ACELLULAR PERTUSSIS ADSORBED, INACTIVATED POLIOVIRUS AND HAEMOPHILUS B CONJUGATE (TETANUS TOXOID CONJUGATE) VACCINE
     Indication: PROPHYLAXIS
     Dosage: UNK
     Dates: start: 20100308
  15. MENINGOCOCCAL POLYSACCHARIDE VACCINE C NOS [Suspect]
     Active Substance: MENINGOCOCCAL POLYSACCHARIDE VACCINE C\NEISSERIA MENINGITIDIS GROUP C CAPSULAR POLYSACCHARIDE ANTIGEN
     Dosage: UNK
     Dates: start: 20110707, end: 20110707
  16. SYNFLORIX [Suspect]
     Active Substance: PNEUMOCOCCAL VACCINE POLYVALENT
     Indication: PROPHYLAXIS
     Dosage: UNK
     Dates: start: 20100308, end: 20100308
  17. HEPATITIS B VIRUS VACCINE (UNSPECIFIED) [Suspect]
     Active Substance: HEPATITIS B VIRUS VACCINE
     Dosage: UNK
     Dates: start: 20100709, end: 20100709
  18. M-M-R II [Suspect]
     Active Substance: MEASLES VIRUS STRAIN ENDERS^ ATTENUATED EDMONSTON LIVE ANTIGEN\MUMPS VIRUS STRAIN B LEVEL JERYL LYNN LIVE ANTIGEN\RUBELLA VIRUS STRAIN WISTAR RA 27/3 LIVE ANTIGEN
     Dates: start: 20140116

REACTIONS (32)
  - Bronchiolitis [Unknown]
  - Otitis media acute [Unknown]
  - Pharyngitis [Unknown]
  - Nasopharyngitis [Unknown]
  - Bronchospasm [Unknown]
  - Bronchiolitis [Unknown]
  - Viral infection [Unknown]
  - Oral herpes [Unknown]
  - Gastroenteritis [Unknown]
  - Conjunctivitis [Unknown]
  - Face injury [Unknown]
  - Gastroenteritis [Unknown]
  - Conjunctivitis [Unknown]
  - Asthmatic crisis [Unknown]
  - Asthma [Unknown]
  - Pyrexia [Unknown]
  - Palpitations [Unknown]
  - Enteritis infectious [Unknown]
  - Pharyngotonsillitis [Unknown]
  - Colitis [Unknown]
  - Conjunctivitis allergic [Unknown]
  - Pharyngeal erythema [Unknown]
  - Limb injury [Unknown]
  - Cough [Unknown]
  - Bronchospasm [Unknown]
  - Bronchitis [Unknown]
  - Nasopharyngitis [Unknown]
  - Haematoma [Unknown]
  - Pharyngitis [Unknown]
  - Adverse event [Unknown]
  - Viral rash [Unknown]
  - Tonsillitis [Unknown]

NARRATIVE: CASE EVENT DATE: 20160118
